FAERS Safety Report 7897993 (Version 2)
Quarter: 2014Q1

REPORT INFORMATION
  Report Type: Spontaneous
  Country: US (occurrence: US)
  Receive Date: 20110413
  Receipt Date: 20140103
  Transmission Date: 20141002
  Serious: Yes (Hospitalization, Other)
  Sender: FDA-Public Use
  Company Number: US-CELGENEUS-163-21880-11022946

PATIENT
  Sex: Male

DRUGS (5)
  1. REVLIMID [Suspect]
     Indication: PLASMA CELL MYELOMA
     Dosage: 25 MILLIGRAM
     Route: 048
     Dates: start: 200912
  2. REVLIMID [Suspect]
     Dosage: 25 MILLIGRAM
     Route: 048
     Dates: start: 201006
  3. COUMADIN [Suspect]
     Indication: DEEP VEIN THROMBOSIS
     Route: 065
  4. COUMADIN [Suspect]
     Indication: THROMBOSIS
  5. QUININE [Concomitant]
     Indication: MUSCLE SPASMS
     Route: 065

REACTIONS (4)
  - Haemorrhage [Unknown]
  - Thrombosis [Unknown]
  - Deep vein thrombosis [Unknown]
  - Muscle spasms [Unknown]
